FAERS Safety Report 8833790 (Version 1)
Quarter: 2012Q4

REPORT INFORMATION
  Report Type: Spontaneous
  Country: US (occurrence: None)
  Receive Date: 20121010
  Receipt Date: 20121010
  Transmission Date: 20130627
  Serious: No
  Sender: FDA-Public Use
  Company Number: None

PATIENT
  Sex: Male
  Weight: 99.79 kg

DRUGS (1)
  1. MELOXICAM [Suspect]
     Indication: OSTEOARTHRITIS
     Dosage: 15 MG ONCE A DAY
     Dates: start: 201206, end: 201208

REACTIONS (8)
  - Joint stiffness [None]
  - Product substitution issue [None]
  - Dysstasia [None]
  - Arthralgia [None]
  - Self-medication [None]
  - Gait disturbance [None]
  - Product quality issue [None]
  - Loss of control of legs [None]
